FAERS Safety Report 7372696-6 (Version None)
Quarter: 2011Q1

REPORT INFORMATION
  Report Type: 
  Country: None (occurrence: None)
  Receive Date: 20110315
  Receipt Date: 20110304
  Transmission Date: 20110831
  Serious: Yes (Hospitalization)
  Sender: FDA-Public Use
  Company Number: DAV-AE-AMP-11-005

PATIENT
  Age: 16 Year
  Sex: Male

DRUGS (3)
  1. AMPICILLIN [Suspect]
  2. CLINDAMYCIN [Concomitant]
  3. AMIKACIN [Concomitant]

REACTIONS (1)
  - ACUTE GENERALISED EXANTHEMATOUS PUSTULOSIS [None]
